FAERS Safety Report 5690788-4 (Version None)
Quarter: 2008Q2

REPORT INFORMATION
  Report Type: 
  Country: None (occurrence: None)
  Receive Date: 20080401
  Receipt Date: 20080327
  Transmission Date: 20081010
  Serious: Yes (Death, Hospitalization)
  Sender: FDA-Public Use
  Company Number: A0718390A

PATIENT
  Age: 84 Year
  Sex: Female
  Weight: 70 kg

DRUGS (1)
  1. SERETIDE [Suspect]
     Indication: BRONCHITIS
     Route: 055
     Dates: start: 20080302, end: 20080309

REACTIONS (1)
  - PNEUMONIA [None]
